FAERS Safety Report 4546087-7 (Version None)
Quarter: 2005Q1

REPORT INFORMATION
  Report Type: 
  Country: None (occurrence: None)
  Receive Date: 20050103
  Receipt Date: 20041221
  Transmission Date: 20050727
  Serious: Yes (Other)
  Sender: FDA-Public Use
  Company Number: 200416166BCC

PATIENT
  Age: 76 Year
  Sex: Male
  Weight: 68.0396 kg

DRUGS (1)
  1. ALEVE (CAPLET) [Suspect]
     Dosage: 220 MG, BID, ORAL
     Route: 048
     Dates: start: 19961020, end: 19961121

REACTIONS (1)
  - MYOCARDIAL INFARCTION [None]
